FAERS Safety Report 4922852-9 (Version None)
Quarter: 2006Q1

REPORT INFORMATION
  Report Type: 
  Country: None (occurrence: None)
  Receive Date: 20060221
  Receipt Date: 20060208
  Transmission Date: 20060701
  Serious: Yes (Death, Hospitalization, Disabling)
  Sender: FDA-Public Use
  Company Number: 02100-JPN-06-0018

PATIENT
  Age: 83 Year
  Sex: Female

DRUGS (6)
  1. CILOSTAZOL [Suspect]
     Indication: LACUNAR INFARCTION
     Dosage: 200 MG
     Route: 048
     Dates: start: 20051001
  2. VALSARTAN [Concomitant]
  3. ISOSORBIDE DINITRATE [Concomitant]
  4. FURSULTIAMINE [Concomitant]
  5. PIRENZEPINE HYDROCHLORIDE [Concomitant]
  6. ETODOLAC [Concomitant]

REACTIONS (7)
  - APALLIC SYNDROME [None]
  - APHASIA [None]
  - BLOOD PRESSURE INADEQUATELY CONTROLLED [None]
  - CEREBRAL HAEMORRHAGE [None]
  - FALL [None]
  - HEMIPLEGIA [None]
  - TREATMENT NONCOMPLIANCE [None]
